FAERS Safety Report 5582935-X (Version None)
Quarter: 2008Q1

REPORT INFORMATION
  Report Type: 
  Country: None (occurrence: None)
  Receive Date: 20080107
  Receipt Date: 20080103
  Transmission Date: 20080703
  Serious: Yes (Death, Hospitalization)
  Sender: FDA-Public Use
  Company Number: FR-ASTRAZENECA-2008CG00003

PATIENT
  Age: 31144 Day
  Sex: Female

DRUGS (16)
  1. MOPRAL [Suspect]
     Route: 048
     Dates: start: 20071119, end: 20071120
  2. DIGIDOT [Suspect]
     Indication: THERAPEUTIC AGENT TOXICITY
     Route: 042
     Dates: start: 20071119, end: 20071119
  3. ALBUTEROL [Suspect]
     Indication: RESPIRATORY DISTRESS
     Route: 055
     Dates: start: 20071119
  4. ATROVENT [Suspect]
     Route: 055
     Dates: start: 20071119
  5. ATARAX [Concomitant]
     Indication: AGITATION
     Route: 048
     Dates: start: 20071119, end: 20071119
  6. NOZINAN [Concomitant]
     Indication: AGITATION
     Route: 048
     Dates: start: 20071119, end: 20071119
  7. HEMIGOXINE [Concomitant]
  8. TRIATEC [Concomitant]
  9. COUMADIN [Concomitant]
  10. LASILIX [Concomitant]
  11. ALDALIX [Concomitant]
  12. ZYLORIC [Concomitant]
  13. EXELON [Concomitant]
  14. SEROPRAM [Concomitant]
  15. ZECLAR [Concomitant]
     Indication: BRONCHOPNEUMONIA
     Dates: start: 20071105, end: 20071114
  16. TAVANIC [Concomitant]
     Indication: BRONCHOPNEUMONIA
     Dates: start: 20071115

REACTIONS (1)
  - RENAL FAILURE ACUTE [None]
